FAERS Safety Report 9524027 (Version 1)
Quarter: 2013Q3

REPORT INFORMATION
  Report Type: Spontaneous
  Country: DE (occurrence: None)
  Receive Date: 20130912
  Receipt Date: 20130912
  Transmission Date: 20140515
  Serious: Yes (Life-Threatening, Hospitalization)
  Sender: FDA-Public Use
  Company Number: FK201304116

PATIENT
  Age: 56 Year
  Sex: Male
  Weight: 105 kg

DRUGS (4)
  1. CEPHAZOLIN FRESENIUS (NOT SPECIFIED) (CEFAZOLIN SODIUM) CEFAZOLIN SODIUM) [Suspect]
     Indication: ANTIBIOTIC PROPHYLAXIS
     Dosage: INTRAVENOUS (NOT OTHERWISE SPECIFIED)
     Route: 042
  2. PROPOFOL (MANUFACTURER UNKNOWN) (PROPOFOL) (PROPOFOL) [Suspect]
     Dosage: 300 MG, 1 IN 1 TOTAL, INTRAVENOUS (NOT OTHERWISE SPECIFIED)
     Route: 042
  3. SUFFENTA (SUFENTANIL CITRATE) (SUFENTANIL CITRATE) [Concomitant]
  4. CLONIDIN (CLONIDINE HYDROCHLORIDE) (CLONIDINE HYDROHLORIDE) [Concomitant]

REACTIONS (1)
  - Anaphylactic reaction [None]
